FAERS Safety Report 20942492 (Version 1)
Quarter: 2022Q2

REPORT INFORMATION
  Report Type: Spontaneous
  Country: CH (occurrence: CH)
  Receive Date: 20220610
  Receipt Date: 20220610
  Transmission Date: 20220721
  Serious: Yes (Hospitalization, Other)
  Sender: FDA-Public Use
  Company Number: CH-BRISTOL-MYERS SQUIBB COMPANY-2022-050141

PATIENT
  Age: 60 Year
  Sex: Male

DRUGS (4)
  1. PACLITAXEL [Suspect]
     Active Substance: PACLITAXEL
     Indication: Product used for unknown indication
     Route: 065
  2. OPDIVO [Suspect]
     Active Substance: NIVOLUMAB
     Indication: Oesophageal squamous cell carcinoma
     Route: 065
  3. CARBOPLATIN [Suspect]
     Active Substance: CARBOPLATIN
     Indication: Product used for unknown indication
     Dosage: 2 AUC
     Route: 065
  4. TAXOL [Suspect]
     Active Substance: PACLITAXEL
     Indication: Oesophageal squamous cell carcinoma
     Route: 065

REACTIONS (6)
  - Oesophagitis [Unknown]
  - Pleurisy [Unknown]
  - Postoperative delirium [Unknown]
  - Acute kidney injury [Unknown]
  - Pneumothorax [Unknown]
  - Pneumonia aspiration [Unknown]
